FAERS Safety Report 8058887 (Version 2)
Quarter: 2013Q4

REPORT INFORMATION
  Report Type: Report from Study
  Country: DZ (occurrence: DZ)
  Receive Date: 20110728
  Receipt Date: 20131230
  Transmission Date: 20140711
  Serious: Yes (Death)
  Sender: FDA-Public Use
  Company Number: DZ-ROCHE-791853

PATIENT
  Sex: Female

DRUGS (16)
  1. TRASTUZUMAB [Suspect]
     Indication: BREAST CANCER
     Dosage: FREQUENCY: PER CURE
     Route: 042
     Dates: start: 20100225, end: 20100504
  2. TRASTUZUMAB [Suspect]
     Route: 042
     Dates: start: 20101220, end: 20110111
  3. BEVACIZUMAB [Suspect]
     Indication: BREAST CANCER
     Route: 042
     Dates: start: 20090823, end: 20091223
  4. BEVACIZUMAB [Suspect]
     Dosage: FREQUENCY: PER CURE
     Route: 042
     Dates: start: 20110208, end: 20110421
  5. BEVACIZUMAB [Suspect]
     Route: 042
  6. GEMCITABINE [Suspect]
     Indication: BREAST CANCER
     Dosage: FREQUENCY: PER CURE.
     Route: 042
     Dates: start: 20110208, end: 20110521
  7. CAPECITABINE [Suspect]
     Indication: METASTASES TO LUNG
     Route: 048
     Dates: start: 20080830, end: 20090106
  8. CAPECITABINE [Suspect]
     Route: 048
     Dates: start: 20090823, end: 20091223
  9. VINORELBINE [Suspect]
     Indication: METASTASES TO LIVER
     Route: 065
  10. VINORELBINE [Suspect]
     Route: 065
     Dates: start: 20090823, end: 20091223
  11. LAPATINIB [Suspect]
     Indication: BREAST CANCER
     Route: 065
  12. LAPATINIB [Suspect]
     Route: 065
     Dates: start: 20101220, end: 20110111
  13. DOCETAXEL [Concomitant]
     Route: 065
     Dates: start: 20080830, end: 20090106
  14. SOLU-MEDROL [Concomitant]
     Route: 065
  15. ZOPHREN [Concomitant]
     Route: 065
  16. AZANTAC [Concomitant]

REACTIONS (4)
  - Hypoxia [Fatal]
  - Disease progression [Fatal]
  - Respiratory distress [Fatal]
  - Asphyxia [Fatal]
